FAERS Safety Report 7478804-0 (Version None)
Quarter: 2011Q2

REPORT INFORMATION
  Report Type: 
  Country: None (occurrence: None)
  Receive Date: 20110513
  Receipt Date: 20110502
  Transmission Date: 20111010
  Serious: Yes (Other)
  Sender: FDA-Public Use
  Company Number: JP-JNJFOC-20110502689

PATIENT
  Sex: Female
  Weight: 45 kg

DRUGS (5)
  1. RISPERDAL [Concomitant]
     Route: 048
  2. CONCERTA [Suspect]
     Indication: ATTENTION DEFICIT/HYPERACTIVITY DISORDER
     Route: 048
  3. CONCERTA [Suspect]
     Route: 048
  4. DEPAKENE [Concomitant]
     Route: 048
  5. CONCERTA [Suspect]
     Route: 048

REACTIONS (3)
  - DECREASED APPETITE [None]
  - DRUG DEPENDENCE [None]
  - WEIGHT DECREASED [None]
